FAERS Safety Report 6763264-5 (Version None)
Quarter: 2010Q2

REPORT INFORMATION
  Report Type: 
  Country: None (occurrence: None)
  Receive Date: 20100610
  Receipt Date: 20100603
  Transmission Date: 20101027
  Serious: Yes (Other)
  Sender: FDA-Public Use
  Company Number: JP-JNJFOC-20100602641

PATIENT
  Sex: Male

DRUGS (4)
  1. DUROTEP MT [Suspect]
     Indication: CENTRAL PAIN SYNDROME
     Route: 062
  2. DUROTEP MT [Suspect]
     Indication: CANCER PAIN
     Route: 062
  3. MORPHINE HYDROCHLORIDE [Suspect]
     Indication: DRUG USE FOR UNKNOWN INDICATION
     Route: 048
  4. LENDORMIN [Concomitant]
     Indication: INSOMNIA
     Route: 048

REACTIONS (3)
  - BLOOD GLUCOSE INCREASED [None]
  - NAUSEA [None]
  - TREATMENT NONCOMPLIANCE [None]
